FAERS Safety Report 15546978 (Version 1)
Quarter: 2018Q4

REPORT INFORMATION
  Report Type: Spontaneous
  Country: HR (occurrence: HR)
  Receive Date: 20181024
  Receipt Date: 20181024
  Transmission Date: 20190205
  Serious: Yes (Hospitalization)
  Sender: FDA-Public Use
  Company Number: HR-JNJFOC-20181027690

PATIENT
  Age: 69 Year
  Sex: Female

DRUGS (10)
  1. CONCOR COR [Concomitant]
     Active Substance: BISOPROLOL FUMARATE
     Route: 048
  2. SIMPONI [Suspect]
     Active Substance: GOLIMUMAB
     Indication: RHEUMATOID ARTHRITIS
     Route: 058
     Dates: start: 20160901, end: 20180925
  3. ALOPURINOL [Concomitant]
     Active Substance: ALLOPURINOL
     Route: 048
  4. RAMIPRIL. [Concomitant]
     Active Substance: RAMIPRIL
     Route: 048
  5. PANTOPRAZOLE [Concomitant]
     Active Substance: PANTOPRAZOLE
     Route: 048
  6. GLUFORMIN [Concomitant]
     Active Substance: METFORMIN HYDROCHLORIDE
     Route: 048
  7. PRYLAR [Concomitant]
     Dosage: ADDITIONAL INFO: DF = 5 MG RAMIPRIL + 5 MG AMLODIPINE
     Route: 048
  8. VITAMIN D3 [Concomitant]
     Active Substance: CHOLECALCIFEROL
     Route: 048
  9. TERTENSIF [Concomitant]
     Active Substance: INDAPAMIDE
     Route: 048
  10. ACETYLSALICYLIC ACID [Concomitant]
     Active Substance: ASPIRIN
     Route: 048

REACTIONS (3)
  - Cachexia [Not Recovered/Not Resolved]
  - Pleural effusion [Not Recovered/Not Resolved]
  - Ascites [Not Recovered/Not Resolved]

NARRATIVE: CASE EVENT DATE: 20180827
